FAERS Safety Report 10092450 (Version 1)
Quarter: 2014Q2

REPORT INFORMATION
  Report Type: Spontaneous
  Country: US (occurrence: US)
  Receive Date: 20140421
  Receipt Date: 20140421
  Transmission Date: 20141212
  Serious: No
  Sender: FDA-Public Use
  Company Number: US-SANOFI-AVENTIS-2013SA044499

PATIENT
  Age: 68 Year
  Sex: Female
  Weight: 65 kg

DRUGS (3)
  1. ALLEGRA [Suspect]
     Indication: MULTIPLE ALLERGIES
     Route: 048
     Dates: start: 2007
  2. ALLEGRA [Suspect]
     Indication: MULTIPLE ALLERGIES
     Dates: start: 20130325, end: 20130415
  3. FLONASE [Concomitant]
     Indication: SINUS DISORDER

REACTIONS (1)
  - Diplopia [Recovered/Resolved]
